FAERS Safety Report 21101111 (Version 2)
Quarter: 2022Q3

REPORT INFORMATION
  Report Type: Spontaneous
  Country: CN (occurrence: None)
  Receive Date: 20220719
  Receipt Date: 20220726
  Transmission Date: 20221027
  Serious: Yes (Other)
  Sender: FDA-Public Use
  Company Number: 2022A253993

PATIENT
  Age: 52 Year
  Sex: Male
  Weight: 65 kg

DRUGS (5)
  1. ROSUVASTATIN CALCIUM [Suspect]
     Active Substance: ROSUVASTATIN CALCIUM
     Indication: Low density lipoprotein decreased
     Route: 048
     Dates: start: 20220604, end: 20220613
  2. BUTYLPHTHALIDE [Suspect]
     Active Substance: BUTYLPHTHALIDE
     Indication: Cerebral ischaemia
     Route: 042
     Dates: start: 20220604, end: 20220613
  3. EDARAVONE [Suspect]
     Active Substance: EDARAVONE
     Indication: Antioxidant therapy
     Route: 042
     Dates: start: 20220604, end: 20220613
  4. TROXERUTIN [Suspect]
     Active Substance: TROXERUTIN
     Indication: Angiopathy
     Route: 042
     Dates: start: 20220604, end: 20220613
  5. BORNEOL, (+)- [Suspect]
     Active Substance: BORNEOL, (+)-

REACTIONS (2)
  - Renal impairment [Recovering/Resolving]
  - Hepatic function abnormal [Recovering/Resolving]

NARRATIVE: CASE EVENT DATE: 20220613
